FAERS Safety Report 6915611-9 (Version None)
Quarter: 2010Q3

REPORT INFORMATION
  Report Type: 
  Country: None (occurrence: None)
  Receive Date: 20100809
  Receipt Date: 20100726
  Transmission Date: 20110219
  Serious: Yes (Hospitalization)
  Sender: FDA-Public Use
  Company Number: US-ELI_LILLY_AND_COMPANY-US201005006552

PATIENT
  Sex: Female
  Weight: 55.782 kg

DRUGS (12)
  1. FORTEO [Suspect]
     Indication: OSTEOPOROSIS
     Dosage: 20 UG, DAILY (1/D)
     Dates: start: 20090320, end: 20100508
  2. PHENERGAN [Concomitant]
     Indication: GASTROOESOPHAGEAL REFLUX DISEASE
     Dosage: 25 MG, AS NEEDED
  3. ZOFRAN [Concomitant]
     Indication: GASTROOESOPHAGEAL REFLUX DISEASE
     Dosage: 8 MG, AS NEEDED
  4. SERAX [Concomitant]
     Indication: ANXIETY DISORDER
     Dosage: 30 MG, 4/D
  5. OXYCONTIN [Concomitant]
     Indication: BACK PAIN
     Dosage: 40 MG, 3/D
  6. SOMA [Concomitant]
     Indication: BACK PAIN
     Dosage: 350 MG, AS NEEDED
  7. TYLENOL (CAPLET) [Concomitant]
     Indication: BACK PAIN
     Dosage: UNK, AS NEEDED
  8. NEURONTIN [Concomitant]
     Indication: SCIATICA
     Dosage: 800 MG, 4/D
  9. PRILOSEC [Concomitant]
     Indication: GASTROOESOPHAGEAL REFLUX DISEASE
     Dosage: 20 MG, DAILY (1/D)
  10. VERAMYST [Concomitant]
     Indication: RHINITIS ALLERGIC
     Dosage: UNK, DAILY (1/D)
     Route: 045
  11. CLARITIN [Concomitant]
     Indication: RHINITIS ALLERGIC
     Dosage: UNK, AS NEEDED
  12. MYSOLINE [Concomitant]
     Indication: TREMOR
     Dosage: 50 MG, EACH EVENING

REACTIONS (9)
  - ANAEMIA [None]
  - BLOOD POTASSIUM DECREASED [None]
  - DIARRHOEA [None]
  - HEART RATE DECREASED [None]
  - HYPOTENSION [None]
  - LOBAR PNEUMONIA [None]
  - LUNG NEOPLASM [None]
  - NAUSEA [None]
  - VOMITING [None]
